FAERS Safety Report 9310426 (Version 1)
Quarter: 2013Q2

REPORT INFORMATION
  Report Type: Spontaneous
  Country: GB (occurrence: GB)
  Receive Date: 20130527
  Receipt Date: 20130527
  Transmission Date: 20140414
  Serious: Yes (Other)
  Sender: FDA-Public Use
  Company Number: PHFR2013GB003045

PATIENT
  Age: 49 Year
  Sex: Female

DRUGS (1)
  1. ESTRADOT [Suspect]
     Indication: HORMONE REPLACEMENT THERAPY
     Dosage: 2 DF, BIW
     Route: 062
     Dates: start: 200807

REACTIONS (9)
  - Lupus-like syndrome [Unknown]
  - Chest pain [Unknown]
  - Malaise [Unknown]
  - Fatigue [Unknown]
  - Asthenia [Unknown]
  - Arthralgia [Unknown]
  - Depression [Unknown]
  - Rash [Unknown]
  - Headache [Unknown]
